FAERS Safety Report 6198481-9 (Version None)
Quarter: 2009Q2

REPORT INFORMATION
  Report Type: 
  Country: None (occurrence: None)
  Receive Date: 20090521
  Receipt Date: 20090512
  Transmission Date: 20091009
  Serious: Yes (Other)
  Sender: FDA-Public Use
  Company Number: PHHY2009JP18687

PATIENT
  Age: 67 Year
  Sex: Male

DRUGS (2)
  1. TEGRETOL [Suspect]
     Indication: PAIN
     Dosage: 600 MG, QD
     Route: 048
     Dates: start: 20090420
  2. MARCAINE [Suspect]
     Indication: PAIN
     Dosage: UNK
     Dates: start: 20090420

REACTIONS (1)
  - CONVULSION [None]
